FAERS Safety Report 4364686-2 (Version None)
Quarter: 2004Q2

REPORT INFORMATION
  Report Type: 
  Country: None (occurrence: None)
  Receive Date: 20040521
  Receipt Date: 20040515
  Transmission Date: 20050107
  Serious: Yes (Death)
  Sender: FDA-Public Use
  Company Number: KII-2001-0010405

PATIENT
  Sex: Female

DRUGS (3)
  1. OXYCONTIN [Suspect]
     Indication: PAIN
     Dosage: 40 MG
  2. CELEBREX [Suspect]
     Indication: PAIN
  3. NORCO [Suspect]
     Indication: PAIN

REACTIONS (3)
  - MULTIPLE DRUG OVERDOSE [None]
  - PEPTIC ULCER PERFORATION [None]
  - SHOCK [None]
